FAERS Safety Report 17129139 (Version 2)
Quarter: 2020Q1

REPORT INFORMATION
  Report Type: Report from Study
  Country: US (occurrence: US)
  Receive Date: 20191209
  Receipt Date: 20200108
  Transmission Date: 20200409
  Serious: Yes (Other)
  Sender: FDA-Public Use
  Company Number: US-ASTRAZENECA-2019SF63152

PATIENT
  Sex: Female

DRUGS (1)
  1. LYNPARZA [Suspect]
     Active Substance: OLAPARIB
     Indication: BREAST CANCER
     Route: 048
     Dates: start: 20191111

REACTIONS (5)
  - Bone marrow failure [Unknown]
  - Vomiting [Unknown]
  - Rhinorrhoea [Unknown]
  - Product dose omission [Unknown]
  - Nausea [Recovering/Resolving]
